FAERS Safety Report 7216214-1 (Version None)
Quarter: 2011Q1

REPORT INFORMATION
  Report Type: 
  Country: None (occurrence: None)
  Receive Date: 20110105
  Receipt Date: 20110105
  Transmission Date: 20110831
  Serious: Yes (Hospitalization)
  Sender: FDA-Public Use
  Company Number: None

PATIENT
  Age: 2 Year
  Sex: Male
  Weight: 7.2 kg

DRUGS (2)
  1. KINERET [Suspect]
     Indication: CHRONIC INFANTILE NEUROLOGICAL CUTANEOUS AND ARTICULAR SYNDROME
     Dosage: 0.15ML SUBCUTANEOUS
     Route: 058
     Dates: start: 20080102, end: 20080107
  2. PREDNISOLONE [Concomitant]

REACTIONS (3)
  - RESPIRATORY SYNCYTIAL VIRUS TEST POSITIVE [None]
  - PNEUMONIA [None]
  - OTITIS MEDIA [None]
